FAERS Safety Report 8419440-9 (Version None)
Quarter: 2012Q2

REPORT INFORMATION
  Report Type: 
  Country: None (occurrence: None)
  Receive Date: 20120607
  Receipt Date: 20120525
  Transmission Date: 20120825
  Serious: Yes (Hospitalization)
  Sender: FDA-Public Use
  Company Number: JP-GLAXOSMITHKLINE-B0798926A

PATIENT
  Sex: Female

DRUGS (9)
  1. EPADEL [Concomitant]
     Route: 048
  2. LENDORMIN [Concomitant]
     Route: 048
  3. CHINESE HERB [Concomitant]
     Route: 048
  4. LAXOBERON [Concomitant]
     Route: 048
  5. DEXAMETHASONE SODIUM PHOSPHATE [Concomitant]
     Indication: PROPHYLAXIS OF NAUSEA AND VOMITING
     Route: 042
     Dates: start: 20120416, end: 20120420
  6. MOTILIUM [Concomitant]
     Dosage: 1TAB PER DAY
     Route: 048
  7. HYCAMTIN [Suspect]
     Indication: OVARIAN CANCER
     Route: 042
     Dates: start: 20120416, end: 20120518
  8. OPALMON [Concomitant]
     Route: 048
  9. TRAMADOL HYDROCHLORIDE [Concomitant]
     Dosage: 2CAP PER DAY
     Route: 048

REACTIONS (3)
  - PLATELET COUNT DECREASED [None]
  - HAEMORRHAGE SUBCUTANEOUS [None]
  - WHITE BLOOD CELL COUNT DECREASED [None]
